FAERS Safety Report 8560787-3 (Version None)
Quarter: 2012Q3

REPORT INFORMATION
  Report Type: 
  Country: None (occurrence: None)
  Receive Date: 20120802
  Receipt Date: 20120720
  Transmission Date: 20120928
  Serious: No
  Sender: FDA-Public Use
  Company Number: US-ASTRAZENECA-2012SE51508

PATIENT
  Age: 52 Year
  Sex: Female

DRUGS (1)
  1. ARIMIDEX [Suspect]
     Route: 048

REACTIONS (6)
  - MUSCLE SPASMS [None]
  - ARTHRALGIA [None]
  - ADVERSE EVENT [None]
  - GASTROOESOPHAGEAL REFLUX DISEASE [None]
  - MOOD SWINGS [None]
  - WEIGHT INCREASED [None]
